FAERS Safety Report 13237048 (Version 1)
Quarter: 2017Q1

REPORT INFORMATION
  Report Type: Spontaneous
  Country: FR (occurrence: FR)
  Receive Date: 20170215
  Receipt Date: 20170215
  Transmission Date: 20170428
  Serious: Yes (Hospitalization)
  Sender: FDA-Public Use
  Company Number: FR-EMD SERONO-8140948

PATIENT
  Age: 35 Year
  Sex: Female

DRUGS (13)
  1. OVITRELLE [Suspect]
     Active Substance: CHORIOGONADOTROPIN ALFA
     Indication: IN VITRO FERTILISATION
     Route: 058
     Dates: start: 20161017
  2. MENOPUR [Suspect]
     Active Substance: FOLLITROPIN\LUTEINIZING HORMONE
     Indication: IN VITRO FERTILISATION
     Dosage: POWDER AND SOLVENT FOR SOLUTION FOR INJECTION
     Route: 058
     Dates: start: 20161006
  3. GONAL-F [Suspect]
     Active Substance: FOLLITROPIN
     Indication: IN VITRO FERTILISATION
     Dates: start: 20161204, end: 20161215
  4. GONAL-F [Suspect]
     Active Substance: FOLLITROPIN
     Route: 058
     Dates: start: 20170101, end: 20170109
  5. OVITRELLE [Suspect]
     Active Substance: CHORIOGONADOTROPIN ALFA
     Route: 058
     Dates: start: 20170109
  6. ASPEGIC [Suspect]
     Active Substance: ASPIRIN DL-LYSINE
     Dates: start: 20161217, end: 20161230
  7. ASPEGIC [Suspect]
     Active Substance: ASPIRIN DL-LYSINE
     Dates: start: 20170101
  8. DECAPEPTYL                         /00486501/ [Suspect]
     Active Substance: GONADORELIN
     Indication: IN VITRO FERTILISATION
     Dosage: POWDER AND SOLVENT FOR SUSPENSION FOR INJECTION (INTRAMUSCULAR) EXTENDED RELEASE FROM 28 DAYS
     Route: 030
     Dates: start: 201608, end: 20161025
  9. VITAMIN C [Concomitant]
     Active Substance: ASCORBIC ACID
     Indication: PRODUCT USED FOR UNKNOWN INDICATION
  10. OVITRELLE [Suspect]
     Active Substance: CHORIOGONADOTROPIN ALFA
     Dates: start: 20161215, end: 20161230
  11. PROGESTAN [Suspect]
     Active Substance: PROGESTERONE
     Indication: IN VITRO FERTILISATION
     Route: 067
     Dates: start: 20161217, end: 20161230
  12. PROGESTAN [Suspect]
     Active Substance: PROGESTERONE
     Route: 067
     Dates: start: 20170111
  13. ASPEGIC [Suspect]
     Active Substance: ASPIRIN DL-LYSINE
     Indication: IN VITRO FERTILISATION
     Route: 048
     Dates: start: 20161019

REACTIONS (1)
  - Erythema nodosum [Not Recovered/Not Resolved]

NARRATIVE: CASE EVENT DATE: 20170114
